FAERS Safety Report 23810202 (Version 1)
Quarter: 2024Q2

REPORT INFORMATION
  Report Type: Report from Study
  Country: IN (occurrence: IN)
  Receive Date: 20240502
  Receipt Date: 20240502
  Transmission Date: 20240716
  Serious: Yes (Other)
  Sender: FDA-Public Use
  Company Number: IN-JNJFOC-20240468505

PATIENT

DRUGS (12)
  1. BEDAQUILINE [Suspect]
     Active Substance: BEDAQUILINE
     Indication: Extrapulmonary tuberculosis
     Route: 048
     Dates: start: 201604, end: 201910
  2. DELAMANID [Suspect]
     Active Substance: DELAMANID
     Indication: Extrapulmonary tuberculosis
     Route: 048
     Dates: start: 201604, end: 201910
  3. LINEZOLID [Suspect]
     Active Substance: LINEZOLID
     Indication: Extrapulmonary tuberculosis
     Route: 065
  4. CLOFAZIMINE [Suspect]
     Active Substance: CLOFAZIMINE
     Indication: Extrapulmonary tuberculosis
     Route: 065
  5. MOXIFLOXACIN [Suspect]
     Active Substance: MOXIFLOXACIN
     Indication: Extrapulmonary tuberculosis
     Route: 065
  6. IMIPENEM [Suspect]
     Active Substance: IMIPENEM
     Indication: Extrapulmonary tuberculosis
     Route: 065
  7. CYCLOSERINE [Suspect]
     Active Substance: CYCLOSERINE
     Indication: Extrapulmonary tuberculosis
     Route: 065
  8. ETHAMBUTOL [Suspect]
     Active Substance: ETHAMBUTOL HYDROCHLORIDE
     Indication: Extrapulmonary tuberculosis
     Route: 065
  9. ISONIAZID [Suspect]
     Active Substance: ISONIAZID
     Indication: Extrapulmonary tuberculosis
     Route: 065
  10. ETHIONAMIDE [Suspect]
     Active Substance: ETHIONAMIDE
     Indication: Extrapulmonary tuberculosis
     Route: 065
  11. PYRAZINAMIDE [Suspect]
     Active Substance: PYRAZINAMIDE
     Indication: Extrapulmonary tuberculosis
     Route: 065
  12. AMOXICILLIN TRIHYDRATE [Suspect]
     Active Substance: AMOXICILLIN
     Indication: Extrapulmonary tuberculosis
     Route: 065

REACTIONS (5)
  - Electrocardiogram QT prolonged [Unknown]
  - Vomiting [Unknown]
  - Hepatitis [Unknown]
  - Treatment failure [Unknown]
  - Off label use [Unknown]
